FAERS Safety Report 21372065 (Version 2)
Quarter: 2022Q4

REPORT INFORMATION
  Report Type: Spontaneous
  Country: CZ (occurrence: CZ)
  Receive Date: 20220923
  Receipt Date: 20221010
  Transmission Date: 20230112
  Serious: Yes (Other)
  Sender: FDA-Public Use
  Company Number: CZ-009507513-2209CZE008781

PATIENT
  Sex: Male

DRUGS (1)
  1. LAGEVRIO [Suspect]
     Active Substance: MOLNUPIRAVIR
     Indication: COVID-19 treatment
     Route: 048

REACTIONS (4)
  - Syncope [Recovering/Resolving]
  - Malaise [Recovering/Resolving]
  - Gastric disorder [Recovering/Resolving]
  - Dizziness [Recovering/Resolving]
